FAERS Safety Report 7517475-1 (Version None)
Quarter: 2011Q2

REPORT INFORMATION
  Report Type: 
  Country: None (occurrence: None)
  Receive Date: 20110601
  Receipt Date: 20110525
  Transmission Date: 20111010
  Serious: Yes (Other)
  Sender: FDA-Public Use
  Company Number: US-JNJFOC-20110512899

PATIENT
  Age: 50 Year
  Sex: Male
  Weight: 134.72 kg

DRUGS (3)
  1. TYLENOL (CAPLET) [Suspect]
     Indication: TOOTHACHE
     Route: 048
     Dates: start: 20110520, end: 20110524
  2. TYLENOL (CAPLET) [Suspect]
     Route: 048
  3. PENICILLIN [Suspect]
     Indication: INFECTION
     Route: 065
     Dates: start: 20110520, end: 20110524

REACTIONS (7)
  - NAUSEA [None]
  - DYSPNOEA [None]
  - ARRHYTHMIA [None]
  - FATIGUE [None]
  - HEART RATE INCREASED [None]
  - PALPITATIONS [None]
  - BLOOD PRESSURE INCREASED [None]
